FAERS Safety Report 23789125 (Version 2)
Quarter: 2024Q2

REPORT INFORMATION
  Report Type: Spontaneous
  Country: VE (occurrence: VE)
  Receive Date: 20240426
  Receipt Date: 20240522
  Transmission Date: 20240716
  Serious: No
  Sender: FDA-Public Use
  Company Number: VE-009507513-2404VEN010707

PATIENT
  Age: 59 Year
  Sex: Male
  Weight: 80 kg

DRUGS (2)
  1. KEYTRUDA [Suspect]
     Active Substance: PEMBROLIZUMAB
     Indication: Malignant melanoma
     Dosage: 200 MILLIGRAM,  EVERY 21 DAYS (Q3W), STRENGTH 100 MG/4ML
     Route: 042
     Dates: start: 20240320, end: 20240320
  2. OPDIVO [Suspect]
     Active Substance: NIVOLUMAB
     Indication: Malignant melanoma
     Dosage: 200 MILLIGRAM
     Route: 042
     Dates: start: 20240320

REACTIONS (4)
  - Suspected counterfeit product [Unknown]
  - Physical product label issue [Unknown]
  - Product use issue [Unknown]
  - No adverse event [Unknown]

NARRATIVE: CASE EVENT DATE: 20240320
